FAERS Safety Report 25273606 (Version 1)
Quarter: 2025Q2

REPORT INFORMATION
  Report Type: Spontaneous
  Country: US (occurrence: None)
  Receive Date: 20250506
  Receipt Date: 20250506
  Transmission Date: 20250717
  Serious: Yes (Hospitalization)
  Sender: FDA-CTU
  Company Number: None

PATIENT
  Age: 69 Year
  Sex: Female
  Weight: 69.3 kg

DRUGS (3)
  1. LEVOFLOXACIN [Suspect]
     Active Substance: LEVOFLOXACIN
     Indication: Urinary tract infection
     Dosage: 1 TABLET DAILY ORAL
     Route: 048
     Dates: start: 20250502, end: 20250506
  2. VITAMIN D3 [Concomitant]
     Active Substance: CHOLECALCIFEROL
  3. K2 Lions mane capsules for brain health [Concomitant]

REACTIONS (2)
  - Vitreous detachment [None]
  - Retinal injury [None]

NARRATIVE: CASE EVENT DATE: 20250502
